FAERS Safety Report 10349628 (Version 1)
Quarter: 2014Q3

REPORT INFORMATION
  Report Type: Report from Study
  Country: NL (occurrence: None)
  Receive Date: 20140728
  Receipt Date: 20140728
  Transmission Date: 20150326
  Serious: Yes (Disabling)
  Sender: FDA-Public Use
  Company Number: 9900127DE

PATIENT
  Age: 51 Year
  Sex: Male

DRUGS (6)
  1. TOLBUTAMIDE. [Concomitant]
     Active Substance: TOLBUTAMIDE
  2. THYRAX [Concomitant]
  3. ZOMACTON (ZOMACTON 4IU/12IU) 1 IU (NOT SPECIFIED) [Suspect]
     Active Substance: SOMATROPIN
     Indication: GROWTH HORMONE DEFICIENCY
     Route: 058
     Dates: start: 19990625, end: 19990825
  4. SUSTANON [Concomitant]
     Active Substance: TESTOSTERONE DECANOATE\TESTOSTERONE ISOCAPROATE\TESTOSTERONE PHENYLPROPIONATE\TESTOSTERONE PROPIONATE
  5. HYDROCORTISONE. [Concomitant]
     Active Substance: HYDROCORTISONE
  6. LOSEC [Concomitant]
     Active Substance: OMEPRAZOLE

REACTIONS (1)
  - Visual field defect [None]

NARRATIVE: CASE EVENT DATE: 19990727
